FAERS Safety Report 6833918-0 (Version None)
Quarter: 2010Q3

REPORT INFORMATION
  Report Type: 
  Country: None (occurrence: None)
  Receive Date: 20100712
  Receipt Date: 20070406
  Transmission Date: 20110219
  Serious: No
  Sender: FDA-Public Use
  Company Number: US-PFIZER INC-2007028968

PATIENT
  Sex: Female
  Weight: 65.77 kg

DRUGS (4)
  1. CHANTIX [Suspect]
     Indication: SMOKING CESSATION THERAPY
     Dates: start: 20070403
  2. MONTELUKAST SODIUM [Concomitant]
     Indication: MULTIPLE ALLERGIES
  3. ACIPHEX [Concomitant]
     Indication: GASTRIC DISORDER
  4. RED YEAST RICE [Concomitant]
     Indication: BLOOD CHOLESTEROL

REACTIONS (2)
  - HEADACHE [None]
  - NAUSEA [None]
